FAERS Safety Report 8764372 (Version 1)
Quarter: 2012Q4

REPORT INFORMATION
  Report Type: 
  Country: IT (occurrence: IT)
  Receive Date: 20120830
  Receipt Date: 20120830
  Transmission Date: 20130627
  Serious: Yes (Hospitalization)
  Sender: FDA-Public Use
  Company Number: PHHY2012IT073411

PATIENT
  Age: 19 Year
  Sex: Male
  Weight: 80 kg

DRUGS (4)
  1. HEPARIN [Suspect]
     Dosage: 5000 IU, UNK
     Route: 042
  2. HEPARIN [Suspect]
  3. HEPARIN [Suspect]
     Dosage: 5000 IU, UNK
     Route: 042
  4. METHYLPREDNISOLONE [Concomitant]
     Dosage: 1 mg/kg, UNK

REACTIONS (8)
  - Thoracic haemorrhage [Recovered/Resolved]
  - Anaemia [Recovered/Resolved]
  - Mediastinal haemorrhage [Recovered/Resolved]
  - Pneumomediastinum [Recovered/Resolved]
  - Thrombocytopenia [Recovered/Resolved]
  - Deep vein thrombosis [Recovered/Resolved]
  - Hypertension [Recovered/Resolved]
  - Venous haemorrhage [Recovered/Resolved]
